FAERS Safety Report 8419339 (Version 2)
Quarter: 2014Q2

REPORT INFORMATION
  Report Type: Spontaneous
  Country: DE (occurrence: DE)
  Receive Date: 20120221
  Receipt Date: 20140515
  Transmission Date: 20141212
  Serious: No
  Sender: FDA-Public Use
  Company Number: PHHY2012DE013281

PATIENT
  Sex: Female

DRUGS (6)
  1. MYCOPHENOLATE [Suspect]
     Indication: HYPER IGD SYNDROME
     Dosage: 1.44 G/DAY
  2. NAPROXEN [Suspect]
  3. PREDNISOLONE [Suspect]
  4. COLCHICINE [Suspect]
  5. VALACICLOVIR [Suspect]
  6. ABATACEPT [Suspect]

REACTIONS (2)
  - Premature labour [Unknown]
  - Maternal exposure during pregnancy [Unknown]
